FAERS Safety Report 11153312 (Version 1)
Quarter: 2015Q2

REPORT INFORMATION
  Report Type: Spontaneous
  Country: GB (occurrence: GB)
  Receive Date: 20150601
  Receipt Date: 20150601
  Transmission Date: 20150821
  Serious: Yes (Other)
  Sender: FDA-Public Use
  Company Number: PHHY2015GB063308

PATIENT
  Age: 39 Year
  Sex: Male

DRUGS (1)
  1. FLUTICASONE PROPIONATE. [Suspect]
     Active Substance: FLUTICASONE PROPIONATE
     Indication: NASAL CONGESTION
     Dosage: 800 MCG, BID
     Route: 045
     Dates: start: 201302

REACTIONS (2)
  - Drug interaction [Unknown]
  - Adrenal suppression [Recovered/Resolved]
